FAERS Safety Report 15253292 (Version 2)
Quarter: 2018Q3

REPORT INFORMATION
  Report Type: Spontaneous
  Country: BR (occurrence: BR)
  Receive Date: 20180807
  Receipt Date: 20180814
  Transmission Date: 20181010
  Serious: Yes (Other)
  Sender: FDA-Public Use
  Company Number: PHHY2018BR064941

PATIENT
  Age: 63 Year
  Sex: Female

DRUGS (1)
  1. VITALUX PLUS OMEGA 03 (ALC) [Suspect]
     Active Substance: MINERALS\OMEGA-3 FATTY ACIDS\VITAMINS
     Indication: VISUAL IMPAIRMENT
     Dosage: 1 DF, QD AT LUNCH
     Route: 048

REACTIONS (10)
  - Dysphagia [Recovering/Resolving]
  - Choking [Recovering/Resolving]
  - Pharyngeal lesion [Recovering/Resolving]
  - Product shape issue [Unknown]
  - Oropharyngeal pain [Recovering/Resolving]
  - Drug ineffective [Unknown]
  - Product coating issue [Unknown]
  - Asphyxia [Recovering/Resolving]
  - Toxicity to various agents [Unknown]
  - Pharyngeal injury [Recovering/Resolving]

NARRATIVE: CASE EVENT DATE: 20180713
